FAERS Safety Report 5113467-0 (Version None)
Quarter: 2006Q3

REPORT INFORMATION
  Report Type: 
  Country: None (occurrence: None)
  Receive Date: 20060920
  Receipt Date: 20060911
  Transmission Date: 20061208
  Serious: Yes (Other)
  Sender: FDA-Public Use
  Company Number: HQWYE548111SEP06

PATIENT
  Age: 62 Year
  Sex: Male

DRUGS (3)
  1. ANCARON (AMIODARONE, UNSPEC) [Suspect]
     Indication: ARRHYTHMIA
     Dosage: 400 MG 1X PER 1 DAY
     Route: 048
     Dates: start: 20060824
  2. LASIX [Suspect]
     Indication: DIURETIC THERAPY
     Dosage: SEE IMAGE
     Route: 048
     Dates: start: 20060824, end: 20060826
  3. LASIX [Suspect]
     Indication: DIURETIC THERAPY
     Dosage: SEE IMAGE
     Route: 048
     Dates: start: 20060827

REACTIONS (3)
  - DRUG INEFFECTIVE [None]
  - DRUG INTERACTION INHIBITION [None]
  - PERICARDIAL EFFUSION [None]
